FAERS Safety Report 7363228-7 (Version None)
Quarter: 2011Q1

REPORT INFORMATION
  Report Type: 
  Country: None (occurrence: None)
  Receive Date: 20110321
  Receipt Date: 20110314
  Transmission Date: 20110831
  Serious: Yes (Other)
  Sender: FDA-Public Use
  Company Number: JP-ASTELLAS-2011JP001804

PATIENT
  Age: 55 Year
  Sex: Male

DRUGS (5)
  1. FLUDARA [Concomitant]
     Route: 065
  2. PROGRAF [Suspect]
     Route: 065
  3. PREDNISOLONE [Concomitant]
     Route: 065
  4. MELPHALAN HYDROCHLORIDE [Concomitant]
     Route: 065
  5. PROGRAF [Suspect]
     Route: 065

REACTIONS (3)
  - DRUG INEFFECTIVE [None]
  - ACUTE GRAFT VERSUS HOST DISEASE IN SKIN [None]
  - ENCEPHALOPATHY [None]
